FAERS Safety Report 8343727-1 (Version None)
Quarter: 2012Q2

REPORT INFORMATION
  Report Type: 
  Country: None (occurrence: None)
  Receive Date: 20120508
  Receipt Date: 20120508
  Transmission Date: 20120825
  Serious: Yes (Other)
  Sender: FDA-Public Use
  Company Number: None

PATIENT
  Sex: Male
  Weight: 57.152 kg

DRUGS (1)
  1. MEFLOQUINE HYDROCHLORIDE [Suspect]
     Indication: MALARIA
     Dosage: 14 DOSES
     Route: 048
     Dates: start: 19931010, end: 19940213

REACTIONS (8)
  - ANXIETY [None]
  - DISTURBANCE IN ATTENTION [None]
  - DEPRESSION [None]
  - HAEMATOCHEZIA [None]
  - SELF ESTEEM DECREASED [None]
  - AMNESIA [None]
  - TREMOR [None]
  - SLEEP DISORDER [None]
